FAERS Safety Report 10165045 (Version 2)
Quarter: 2014Q2

REPORT INFORMATION
  Report Type: Spontaneous
  Country: US (occurrence: US)
  Receive Date: 20140510
  Receipt Date: 20140510
  Transmission Date: 20141212
  Serious: No
  Sender: FDA-Public Use
  Company Number: US-BRISTOL-MYERS SQUIBB COMPANY-20264172

PATIENT
  Age: 35 Year
  Sex: Female
  Weight: 123.35 kg

DRUGS (1)
  1. BYDUREON [Suspect]
     Indication: TYPE 2 DIABETES MELLITUS
     Route: 058

REACTIONS (3)
  - Alopecia [Recovered/Resolved]
  - Weight decreased [Unknown]
  - Blood glucose fluctuation [Not Recovered/Not Resolved]
